FAERS Safety Report 7420531-X (Version None)
Quarter: 2011Q2

REPORT INFORMATION
  Report Type: 
  Country: None (occurrence: None)
  Receive Date: 20110418
  Receipt Date: 20110411
  Transmission Date: 20111010
  Serious: Yes (Death, Other)
  Sender: FDA-Public Use
  Company Number: AU-JNJFOC-20110303025

PATIENT
  Age: 81 Year
  Sex: Female

DRUGS (5)
  1. DURAGESIC-100 [Suspect]
     Route: 062
  2. PANAMAX [Concomitant]
     Route: 065
  3. MURELAX [Concomitant]
     Route: 065
  4. DURAGESIC-100 [Suspect]
     Indication: PAIN
     Dosage: 12-25 UG/HR
     Route: 062
  5. LEVOTHYROXINE SODIUM [Concomitant]
     Route: 065

REACTIONS (4)
  - RESPIRATORY FAILURE [None]
  - DIABETES INSIPIDUS [None]
  - PULMONARY FIBROSIS [None]
  - PNEUMONIA [None]
